FAERS Safety Report 5097556-5 (Version None)
Quarter: 2006Q3

REPORT INFORMATION
  Report Type: 
  Country: None (occurrence: None)
  Receive Date: 20060901
  Receipt Date: 20060821
  Transmission Date: 20061208
  Serious: Yes (Death, Hospitalization)
  Sender: FDA-Public Use
  Company Number: 2006085755

PATIENT
  Age: 72 Year
  Sex: Male

DRUGS (16)
  1. ZYVOX [Suspect]
     Indication: PNEUMONIA
     Dosage: 1200 MG (2 IN 1 D, INTRAVENOUS
     Route: 042
     Dates: start: 20060623, end: 20060709
  2. ZYVOX [Suspect]
     Indication: STAPHYLOCOCCAL INFECTION
     Dosage: 1200 MG (2 IN 1 D, INTRAVENOUS
     Route: 042
     Dates: start: 20060623, end: 20060709
  3. DOPS (DROXIDOPA) [Suspect]
     Indication: ORTHOSTATIC HYPOTENSION
     Dosage: 200 MG (2 IN 1 D), ORAL
     Route: 048
     Dates: start: 20060617, end: 20060713
  4. VANCOMYCIN [Concomitant]
  5. TEICOPLANIN (TEICOPLANIN) [Concomitant]
  6. ADONA (CARBAZOCHROME SODIUM SULFONATE) [Concomitant]
  7. CLARITHROMYCIN [Concomitant]
  8. CLEANAL (FUDOSTEINE) [Concomitant]
  9. DEXTROMETHORPHAN HYDROBROMIDE [Concomitant]
  10. MAGNESIUM OXIDE (MAGNESIUM OXIDE) [Concomitant]
  11. MUCOSOLVAN (AMBROXOL HYDROCHLORIDE) [Concomitant]
  12. PARLODEL [Concomitant]
  13. MENESIT (CARBIDOPA, LEVODOPA) [Concomitant]
  14. SYMMETREL [Concomitant]
  15. ARTANE [Concomitant]
  16. SELEGILINE HYDROCHLORIDE (SELEGILINE HYDROCHLORIDE) [Concomitant]

REACTIONS (6)
  - AGGRESSION [None]
  - DELIRIUM [None]
  - DRUG INEFFECTIVE [None]
  - HALLUCINATION [None]
  - PLATELET COUNT DECREASED [None]
  - PNEUMONIA ASPIRATION [None]
